FAERS Safety Report 16202572 (Version 2)
Quarter: 2019Q2

REPORT INFORMATION
  Report Type: Spontaneous
  Country: US (occurrence: US)
  Receive Date: 20190416
  Receipt Date: 20190515
  Transmission Date: 20190711
  Serious: No
  Sender: FDA-Public Use
  Company Number: US-SA-2019SA105127

PATIENT
  Age: 72 Year
  Sex: Female

DRUGS (1)
  1. KEVZARA [Suspect]
     Active Substance: SARILUMAB
     Indication: RHEUMATOID ARTHRITIS
     Dosage: 200 MG, QOW
     Route: 058
     Dates: start: 201903, end: 2019

REACTIONS (4)
  - Drug ineffective [Unknown]
  - Anxiety [Unknown]
  - Blood count abnormal [Unknown]
  - Depression [Unknown]

NARRATIVE: CASE EVENT DATE: 2019
